FAERS Safety Report 10930353 (Version 2)
Quarter: 2015Q2

REPORT INFORMATION
  Report Type: Spontaneous
  Country: DE (occurrence: DE)
  Receive Date: 20150319
  Receipt Date: 20150630
  Transmission Date: 20150821
  Serious: Yes (Hospitalization)
  Sender: FDA-Public Use
  Company Number: US-ASTRAZENECA-2015SE24572

PATIENT
  Age: 89 Day
  Sex: Female
  Weight: 4.2 kg

DRUGS (12)
  1. SPIRONOLACTONE. [Concomitant]
     Active Substance: SPIRONOLACTONE
     Indication: PRODUCT USED FOR UNKNOWN INDICATION
     Route: 048
  2. SYNAGIS [Suspect]
     Active Substance: PALIVIZUMAB
     Indication: ANTIVIRAL PROPHYLAXIS
     Route: 030
     Dates: start: 20150410, end: 20150410
  3. SYNAGIS [Suspect]
     Active Substance: PALIVIZUMAB
     Indication: ATRIOVENTRICULAR SEPTAL DEFECT
     Route: 030
     Dates: start: 20150410, end: 20150410
  4. LASIX [Concomitant]
     Active Substance: FUROSEMIDE
     Indication: PRODUCT USED FOR UNKNOWN INDICATION
     Route: 048
  5. SYNAGIS [Suspect]
     Active Substance: PALIVIZUMAB
     Indication: ANTIVIRAL PROPHYLAXIS
     Dosage: 15MG/KG BODY WEIGHT (48 MG)
     Route: 030
     Dates: start: 20150106, end: 20150106
  6. SYNAGIS [Suspect]
     Active Substance: PALIVIZUMAB
     Indication: ATRIOVENTRICULAR SEPTAL DEFECT
     Dosage: 15MG/KG BODY WEIGHT (48 MG)
     Route: 030
     Dates: start: 20150106, end: 20150106
  7. SYNAGIS [Suspect]
     Active Substance: PALIVIZUMAB
     Indication: ATRIOVENTRICULAR SEPTAL DEFECT
     Dosage: 15MG/KG BODY WEIGHT (63 MG)
     Route: 030
     Dates: start: 20150313, end: 20150313
  8. SYNAGIS [Suspect]
     Active Substance: PALIVIZUMAB
     Indication: ATRIOVENTRICULAR SEPTAL DEFECT
     Dosage: 15MG/KG BODY WEIGHT (56 MG)
     Route: 030
     Dates: start: 20150203, end: 20150203
  9. SYNAGIS [Suspect]
     Active Substance: PALIVIZUMAB
     Indication: ANTIVIRAL PROPHYLAXIS
     Dosage: 15MG/KG BODY WEIGHT (43 MG)
     Route: 030
     Dates: start: 20141209, end: 20141209
  10. SYNAGIS [Suspect]
     Active Substance: PALIVIZUMAB
     Indication: ANTIVIRAL PROPHYLAXIS
     Dosage: 15MG/KG BODY WEIGHT (56 MG)
     Route: 030
     Dates: start: 20150203, end: 20150203
  11. SYNAGIS [Suspect]
     Active Substance: PALIVIZUMAB
     Indication: ANTIVIRAL PROPHYLAXIS
     Dosage: 15MG/KG BODY WEIGHT (63 MG)
     Route: 030
     Dates: start: 20150313, end: 20150313
  12. SYNAGIS [Suspect]
     Active Substance: PALIVIZUMAB
     Indication: ATRIOVENTRICULAR SEPTAL DEFECT
     Dosage: 15MG/KG BODY WEIGHT (43 MG)
     Route: 030
     Dates: start: 20141209, end: 20141209

REACTIONS (2)
  - Bronchopneumonia [Recovered/Resolved]
  - Respiratory syncytial virus test positive [Recovered/Resolved]

NARRATIVE: CASE EVENT DATE: 20150302
